FAERS Safety Report 4964784-6 (Version None)
Quarter: 2006Q2

REPORT INFORMATION
  Report Type: 
  Country: None (occurrence: None)
  Receive Date: 20060406
  Receipt Date: 20060330
  Transmission Date: 20061013
  Serious: Yes (Hospitalization)
  Sender: FDA-Public Use
  Company Number: US-ROCHE-442475

PATIENT
  Age: 46 Year
  Sex: Male
  Weight: 113.4 kg

DRUGS (12)
  1. PEG-INTERFERON ALFA 2A (RO 25-8310) [Suspect]
     Route: 058
     Dates: start: 20020607, end: 20020830
  2. BLINDED THYMOSIN ALFA 1 [Suspect]
     Route: 058
     Dates: start: 20020608, end: 20020830
  3. EMPIRIN [Concomitant]
     Route: 048
     Dates: start: 19960615
  4. HYDROCODONE [Concomitant]
     Route: 048
     Dates: start: 19960615
  5. MILK THISTLE [Concomitant]
     Route: 048
     Dates: start: 20010601
  6. TYLENOL E.S. [Concomitant]
     Route: 048
     Dates: start: 20020608
  7. UNSPECIFIED DRUG [Concomitant]
     Dosage: DRUG REPORTED AS 'GASTRO PRO'
     Route: 048
     Dates: start: 20010601
  8. TYLENOL W/ CODEINE NO. 3 [Concomitant]
     Route: 048
     Dates: start: 20020723
  9. SELENIUM SULFIDE [Concomitant]
     Route: 048
     Dates: start: 20010601
  10. VITAMIN E [Concomitant]
     Route: 048
     Dates: start: 20010601
  11. UNSPECIFIED DRUG [Concomitant]
     Dosage: REPORTED AS 'GREEN TEA EXTRACT'
     Route: 048
     Dates: start: 20010601
  12. TENORMIN [Concomitant]
     Route: 048
     Dates: start: 20020902

REACTIONS (3)
  - ANXIETY [None]
  - ATRIAL FIBRILLATION [None]
  - HYPOTHYROIDISM [None]
